FAERS Safety Report 10033954 (Version 1)
Quarter: 2014Q1

REPORT INFORMATION
  Report Type: Spontaneous
  Country: US (occurrence: None)
  Receive Date: 20140324
  Receipt Date: 20140324
  Transmission Date: 20141002
  Serious: Yes (Death)
  Sender: FDA-Public Use
  Company Number: None

PATIENT
  Age: 52 Year
  Sex: Male
  Weight: 97.52 kg

DRUGS (8)
  1. DURAGESIC [Suspect]
     Route: 062
     Dates: start: 20140222, end: 20140223
  2. FLAGYL [Concomitant]
  3. LANTUS [Concomitant]
  4. NOVOLOG [Concomitant]
  5. PROTONIX [Concomitant]
  6. TYLENOL [Concomitant]
  7. MORPHINE [Concomitant]
  8. VONCOMYCIN [Concomitant]

REACTIONS (6)
  - Cardiac arrest [None]
  - Respiratory distress [None]
  - Metabolic acidosis [None]
  - Hypotension [None]
  - Unresponsive to stimuli [None]
  - Mental status changes [None]
